FAERS Safety Report 16165750 (Version 6)
Quarter: 2019Q2

REPORT INFORMATION
  Report Type: Report from Study
  Country: US (occurrence: US)
  Receive Date: 20190405
  Receipt Date: 20190628
  Transmission Date: 20190711
  Serious: Yes (Hospitalization, Other)
  Sender: FDA-Public Use
  Company Number: US-BTG-201900051

PATIENT
  Age: 75 Year
  Sex: Male
  Weight: 97.6 kg

DRUGS (10)
  1. VORAXAZE [Suspect]
     Active Substance: GLUCARPIDASE
     Indication: PRODUCT USED FOR UNKNOWN INDICATION
     Dosage: 1ST DOSE (2000 UNITS ONCE PER 2 WEEKS)
     Route: 042
     Dates: start: 20190314, end: 20190314
  2. VORAXAZE [Suspect]
     Active Substance: GLUCARPIDASE
     Indication: PRODUCT USED FOR UNKNOWN INDICATION
     Dosage: 3RD DOSE (2000 UNITS ONCE PER 2 WEEKS)
     Route: 042
     Dates: start: 20190410, end: 20190410
  3. DEXAMETHASONE. [Suspect]
     Active Substance: DEXAMETHASONE
     Indication: PRODUCT USED FOR UNKNOWN INDICATION
     Route: 065
  4. LEUCOVORIN. [Concomitant]
     Active Substance: LEUCOVORIN
     Indication: PRODUCT USED FOR UNKNOWN INDICATION
     Dosage: LEUCOVORIN WAS ADMINISTERED 26 HOURS POST MTX TREATMENT AT DOSE 25 MG
     Route: 065
     Dates: start: 20190314
  5. METHOTREXATE. [Concomitant]
     Active Substance: METHOTREXATE
     Indication: CENTRAL NERVOUS SYSTEM LYMPHOMA
     Dosage: 3 G/M2 2ND CYCLE
     Route: 065
     Dates: start: 20190325
  6. VORAXAZE [Suspect]
     Active Substance: GLUCARPIDASE
     Indication: PRODUCT USED FOR UNKNOWN INDICATION
     Dosage: 2ND DOSE (2000 UNITS ONCE PER 2 WEEKS)
     Route: 042
     Dates: start: 20190326, end: 20190326
  7. RITUXIMAB. [Concomitant]
     Active Substance: RITUXIMAB
     Indication: CENTRAL NERVOUS SYSTEM LYMPHOMA
     Dosage: 500 MG/M2 Q 2 WEEKS.
     Route: 065
     Dates: start: 20190312
  8. LEUCOVORIN. [Concomitant]
     Active Substance: LEUCOVORIN
     Indication: PRODUCT USED FOR UNKNOWN INDICATION
     Dosage: AND ADMINISTERED THEREAFTER EVERY 6 HOURS UNTIL MTX LEVELS REACHED { 100 NMOL/L
     Route: 065
  9. METHOTREXATE. [Concomitant]
     Active Substance: METHOTREXATE
     Indication: CENTRAL NERVOUS SYSTEM LYMPHOMA
     Dosage: 3 G/M2 1ST CYCLE
     Route: 065
     Dates: start: 20190313
  10. RITUXIMAB. [Concomitant]
     Active Substance: RITUXIMAB
     Indication: CENTRAL NERVOUS SYSTEM LYMPHOMA
     Dosage: 3RD CYCLE (RITUXIMAB WAS OMITTED FROM HIS 2ND CYCLE OF TREATMENT DUE TO ONGOING WORKUP+DIAGNOSIS)
     Route: 065
     Dates: start: 20190409

REACTIONS (2)
  - Pneumocystis jirovecii pneumonia [Recovered/Resolved]
  - Toxicity to various agents [Unknown]

NARRATIVE: CASE EVENT DATE: 20190326
